FAERS Safety Report 11301118 (Version 1)
Quarter: 2015Q3

REPORT INFORMATION
  Report Type: Spontaneous
  Country: US (occurrence: US)
  Receive Date: 20150722
  Receipt Date: 20150722
  Transmission Date: 20151125
  Serious: No
  Sender: FDA-Public Use
  Company Number: US-ELI_LILLY_AND_COMPANY-US201104006825

PATIENT
  Sex: Female

DRUGS (2)
  1. HUMATROPE [Suspect]
     Active Substance: SOMATROPIN
     Indication: HYPOPITUITARISM
     Dosage: 0.2 MG, UNK
     Route: 065
  2. HUMATROPE [Suspect]
     Active Substance: SOMATROPIN
     Indication: HYPOTHALAMO-PITUITARY DISORDER
     Dosage: 6 MG, UNK
     Route: 065
     Dates: start: 2010, end: 201310

REACTIONS (9)
  - Muscular weakness [Unknown]
  - Drug dose omission [Unknown]
  - Muscle disorder [Unknown]
  - Weight decreased [Unknown]
  - Withdrawal syndrome [Unknown]
  - Pain [Unknown]
  - Gastrointestinal disorder [Unknown]
  - Malaise [Unknown]
  - Fatigue [Unknown]

NARRATIVE: CASE EVENT DATE: 2013
